FAERS Safety Report 5956992-2 (Version None)
Quarter: 2008Q4

REPORT INFORMATION
  Report Type: 
  Country: None (occurrence: None)
  Receive Date: 20081118
  Receipt Date: 20080828
  Transmission Date: 20090506
  Serious: No
  Sender: FDA-Public Use
  Company Number: A0740519A

PATIENT
  Age: 67 Year
  Sex: Male

DRUGS (3)
  1. COREG CR [Suspect]
     Indication: ARRHYTHMIA
     Dosage: 40MG UNKNOWN
     Route: 048
     Dates: start: 20080101
  2. RYTHMOL SR [Suspect]
     Indication: ARRHYTHMIA
     Dosage: 225MG TWICE PER DAY
     Route: 048
     Dates: start: 20080728
  3. PROSCAR [Concomitant]

REACTIONS (2)
  - FAECES HARD [None]
  - FATIGUE [None]
